FAERS Safety Report 9270642 (Version 1)
Quarter: 2013Q2

REPORT INFORMATION
  Report Type: Other
  Country: DK (occurrence: FI)
  Receive Date: 20130503
  Receipt Date: 20130503
  Transmission Date: 20140414
  Serious: Yes (Death)
  Sender: FDA-Public Use
  Company Number: FI-FRI-1000044892

PATIENT
  Age: 85 Year
  Sex: Female

DRUGS (5)
  1. CITALOPRAM [Suspect]
  2. VENLAFAXINE [Suspect]
  3. DESMETHYLDIAZEPAM [Suspect]
  4. TEMAZEPAM [Suspect]
  5. OXAZEPAM [Suspect]

REACTIONS (1)
  - Toxicity to various agents [Fatal]
